FAERS Safety Report 8932506 (Version 1)
Quarter: 2012Q4

REPORT INFORMATION
  Report Type: Spontaneous
  Country: US (occurrence: None)
  Receive Date: 20121126
  Receipt Date: 20121126
  Transmission Date: 20130627
  Serious: Yes (Hospitalization, Disabling, Other)
  Sender: FDA-Public Use
  Company Number: None

PATIENT
  Age: 55 Year
  Sex: Female
  Weight: 63.5 kg

DRUGS (1)
  1. ORENCIA [Suspect]
     Indication: ARTHRITIS
     Dosage: I.V.  injection   every 2 wks.
     Route: 042

REACTIONS (4)
  - Feeling abnormal [None]
  - Transfusion [None]
  - Spinal disorder [None]
  - Walking aid user [None]
